FAERS Safety Report 19236488 (Version 2)
Quarter: 2021Q4

REPORT INFORMATION
  Report Type: Spontaneous
  Country: US (occurrence: US)
  Receive Date: 20210510
  Receipt Date: 20211021
  Transmission Date: 20220303
  Serious: Yes (Hospitalization)
  Sender: FDA-Public Use
  Company Number: US-CADILA HEALTHCARE LIMITED-US-ZYDUS-065301

PATIENT

DRUGS (2)
  1. COLCHICINE [Suspect]
     Active Substance: COLCHICINE
     Indication: Myocarditis
     Dosage: UNK (BETWEEN 32.4MG (0.39 MG/KG) AND 54MG (0.65 MG/KG))
     Route: 048
  2. COLCHICINE [Suspect]
     Active Substance: COLCHICINE
     Indication: Pericarditis
     Dosage: 90 PILLS (54MG, 0.65 MG/KG)
     Route: 048

REACTIONS (19)
  - Cardiovascular disorder [Unknown]
  - Hypocalcaemia [Unknown]
  - Multiple organ dysfunction syndrome [Unknown]
  - Disseminated intravascular coagulation [Unknown]
  - Mouth haemorrhage [Unknown]
  - Catheter site haemorrhage [Unknown]
  - Arterial haemorrhage [Unknown]
  - Acute hepatic failure [Unknown]
  - Acute kidney injury [Unknown]
  - Lactic acidosis [Unknown]
  - Hyperphosphataemia [Unknown]
  - Hyperkalaemia [Unknown]
  - Hypomagnesaemia [Unknown]
  - Hypoglycaemia [Unknown]
  - Toxicity to various agents [Unknown]
  - Neutropenia [Unknown]
  - Overdose [Unknown]
  - Pancytopenia [Unknown]
  - Rhabdomyolysis [Unknown]
